FAERS Safety Report 5441858-7 (Version None)
Quarter: 2007Q3

REPORT INFORMATION
  Report Type: 
  Country: None (occurrence: None)
  Receive Date: 20070830
  Receipt Date: 20070830
  Transmission Date: 20080115
  Serious: Yes (Hospitalization)
  Sender: FDA-Public Use
  Company Number: None

PATIENT
  Age: 69 Year
  Sex: Female
  Weight: 72.7 kg

DRUGS (10)
  1. MORPHINE SULFATE [Suspect]
     Indication: ABDOMINAL PAIN UPPER
     Dosage: 4 MG Q15 MINUTES PRN IV BOLUS
     Route: 040
     Dates: start: 20070821, end: 20070821
  2. PREVACID [Concomitant]
  3. ASCORBIC ACID [Concomitant]
  4. HYDROCHLOROTHIAZIDE [Concomitant]
  5. WARFARIN SODIUM [Concomitant]
  6. LISINOPRIL [Concomitant]
  7. DILTIAZEM [Concomitant]
  8. ARIMIDEX [Concomitant]
  9. AMLODIPINE [Concomitant]
  10. TRAMADOL HCL [Concomitant]

REACTIONS (6)
  - ABDOMINAL PAIN UPPER [None]
  - CONTRAINDICATION TO MEDICAL TREATMENT [None]
  - DYSPHORIA [None]
  - FATIGUE [None]
  - NAUSEA [None]
  - VOMITING [None]
